FAERS Safety Report 9551331 (Version 2)
Quarter: 2013Q4

REPORT INFORMATION
  Report Type: Spontaneous
  Country: DE (occurrence: DE)
  Receive Date: 20130925
  Receipt Date: 20131106
  Transmission Date: 20140711
  Serious: Yes (Other)
  Sender: FDA-Public Use
  Company Number: DE-BRISTOL-MYERS SQUIBB COMPANY-19399559

PATIENT
  Age: 7 Decade
  Sex: Male

DRUGS (4)
  1. ELIQUIS [Suspect]
     Indication: CEREBROVASCULAR ACCIDENT PROPHYLAXIS
     Dosage: TABS.
     Dates: start: 2013
  2. ELIQUIS [Suspect]
     Indication: ATRIAL FIBRILLATION
     Dosage: TABS.
     Dates: start: 2013
  3. MARCUMAR [Suspect]
     Dosage: 1 TAB ON THURS+ FRI.?1/2 TAB ON SAT + SUN.
  4. KEPPRA [Concomitant]

REACTIONS (1)
  - Wrong drug administered [Unknown]
